FAERS Safety Report 9734688 (Version 3)
Quarter: 2014Q3

REPORT INFORMATION
  Report Type: Spontaneous
  Country: US (occurrence: US)
  Receive Date: 20131206
  Receipt Date: 20140820
  Transmission Date: 20150326
  Serious: No
  Sender: FDA-Public Use
  Company Number: US-009507513-1312USA001366

PATIENT
  Sex: Female
  Weight: 72.56 kg

DRUGS (3)
  1. NUVARING [Suspect]
     Active Substance: ETHINYL ESTRADIOL\ETONOGESTREL
     Indication: MENSTRUAL CYCLE MANAGEMENT
  2. NUVARING [Suspect]
     Active Substance: ETHINYL ESTRADIOL\ETONOGESTREL
     Indication: CONTRACEPTION
     Dosage: UNK
     Route: 067
     Dates: start: 2012, end: 2013
  3. NUVARING [Suspect]
     Active Substance: ETHINYL ESTRADIOL\ETONOGESTREL
     Indication: DYSMENORRHOEA

REACTIONS (6)
  - Deep vein thrombosis [Unknown]
  - Off label use [Unknown]
  - Deep vein thrombosis [Unknown]
  - Clostridium difficile colitis [Unknown]
  - Uterine leiomyoma [Unknown]
  - Hepatic adenoma [Unknown]

NARRATIVE: CASE EVENT DATE: 2012
